FAERS Safety Report 6487489-1 (Version None)
Quarter: 2009Q4

REPORT INFORMATION
  Report Type: 
  Country: None (occurrence: None)
  Receive Date: 20091123
  Receipt Date: 20090923
  Transmission Date: 20100525
  Serious: No
  Sender: FDA-Public Use
  Company Number: 8052553

PATIENT
  Age: 60 Year
  Sex: Female
  Weight: 39.1 kg

DRUGS (12)
  1. CIMZIA [Suspect]
     Indication: CROHN'S DISEASE
     Dosage: 400 MG SC
     Route: 058
     Dates: start: 20080601
  2. COUMADIN [Concomitant]
  3. TRAMADOL HCL [Concomitant]
  4. XOPENEX [Concomitant]
  5. BECLOMETHASONE DIPROPIONATE [Concomitant]
  6. MULTI-VITAMIN [Concomitant]
  7. LUTEIN [Concomitant]
  8. LOVAZA [Concomitant]
  9. POTASSIUM GLUCONATE TAB [Concomitant]
  10. GARLIC [Concomitant]
  11. CALCIUM-MAGNESIUM WITH ZINC [Concomitant]
  12. PREDNISONE [Concomitant]

REACTIONS (4)
  - ABDOMINAL DISTENSION [None]
  - ABDOMINAL PAIN [None]
  - HAEMATOCHEZIA [None]
  - PROCTITIS [None]
